FAERS Safety Report 18141648 (Version 2)
Quarter: 2020Q3

REPORT INFORMATION
  Report Type: Spontaneous
  Country: US (occurrence: US)
  Receive Date: 20200812
  Receipt Date: 20200819
  Transmission Date: 20201103
  Serious: Yes (Death)
  Sender: FDA-Public Use
  Company Number: US-CELGENEUS-USA-20200802076

PATIENT
  Age: 74 Year
  Sex: Male

DRUGS (7)
  1. GABAPENTIN. [Concomitant]
     Active Substance: GABAPENTIN
     Indication: BACK PAIN
     Dosage: 300 MILLIGRAM
     Route: 048
     Dates: start: 20200713, end: 20200809
  2. ALBUTEROL. [Concomitant]
     Active Substance: ALBUTEROL
     Indication: CHRONIC OBSTRUCTIVE PULMONARY DISEASE
     Dosage: 2 PUFFS EVERY 6 HOURS
     Route: 055
     Dates: start: 2018, end: 20200809
  3. SPIRIVA [Concomitant]
     Active Substance: TIOTROPIUM BROMIDE MONOHYDRATE
     Indication: CHRONIC OBSTRUCTIVE PULMONARY DISEASE
     Dosage: 2 PUFFS DAILY
     Route: 055
     Dates: start: 2015, end: 20200809
  4. REVLIMID [Suspect]
     Active Substance: LENALIDOMIDE
     Indication: MANTLE CELL LYMPHOMA RECURRENT
     Dosage: 20 MILLIGRAM
     Route: 048
     Dates: start: 20200622, end: 20200809
  5. RITUXAN [Concomitant]
     Active Substance: RITUXIMAB
     Indication: MANTLE CELL LYMPHOMA RECURRENT
     Dosage: ONCE WEEKLY FOR 4 WEEKS, THEN MONTHLY
     Route: 041
     Dates: start: 20200622, end: 20200713
  6. IBRUTINIB [Concomitant]
     Active Substance: IBRUTINIB
     Indication: MANTLE CELL LYMPHOMA RECURRENT
     Dosage: 420 MILLIGRAM
     Route: 048
     Dates: start: 20200622, end: 20200809
  7. MIRTAZAPINE. [Concomitant]
     Active Substance: MIRTAZAPINE
     Indication: DECREASED APPETITE
     Dosage: 7.5 MILLIGRAM
     Route: 048
     Dates: start: 20200730, end: 20200808

REACTIONS (1)
  - Death [Fatal]

NARRATIVE: CASE EVENT DATE: 20200809
